FAERS Safety Report 19173799 (Version 1)
Quarter: 2021Q2

REPORT INFORMATION
  Report Type: Spontaneous
  Country: JP (occurrence: JP)
  Receive Date: 20210423
  Receipt Date: 20210423
  Transmission Date: 20210717
  Serious: Yes (Death, Other)
  Sender: FDA-Public Use
  Company Number: JP-PFIZER INC-2021432025

PATIENT
  Age: 69 Year
  Sex: Male

DRUGS (8)
  1. CISPLATIN. [Concomitant]
     Active Substance: CISPLATIN
     Dosage: 60 MG/M2
  2. DOCETAXEL. [Concomitant]
     Active Substance: DOCETAXEL
     Dosage: 60 MG/M2
  3. METHYLPREDNISOLONE SODIUM SUCCINATE. [Suspect]
     Active Substance: METHYLPREDNISOLONE SODIUM SUCCINATE
     Dosage: 1000 MG, 1X/DAY
     Route: 042
  4. PACLITAXEL. [Concomitant]
     Active Substance: PACLITAXEL
     Dosage: 100 MG/M2
  5. PEMETREXED. [Concomitant]
     Active Substance: PEMETREXED
     Dosage: 500 MG/M2
  6. CARBOPLATIN. [Concomitant]
     Active Substance: CARBOPLATIN
     Dosage: 6.0 UNK
  7. NIVOLUMAB [Concomitant]
     Active Substance: NIVOLUMAB
     Dosage: 240 MG
  8. PEMBROLIZUMAB. [Concomitant]
     Active Substance: PEMBROLIZUMAB
     Dosage: 200 MG

REACTIONS (3)
  - Treatment failure [Unknown]
  - Respiratory failure [Unknown]
  - Pneumonitis [Fatal]
